FAERS Safety Report 8966242 (Version 1)
Quarter: 2012Q4

REPORT INFORMATION
  Report Type: 
  Country: TH (occurrence: TH)
  Receive Date: 20121217
  Receipt Date: 20121217
  Transmission Date: 20130627
  Serious: Yes (Other)
  Sender: FDA-Public Use
  Company Number: TH-JNJFOC-20121203676

PATIENT
  Age: 40 Year
  Sex: Female

DRUGS (4)
  1. EVRA [Suspect]
     Indication: CONTRACEPTION
     Route: 062
  2. EVRA [Suspect]
     Indication: CONTRACEPTION
     Route: 062
  3. EVRA [Suspect]
     Indication: CONTRACEPTION
     Route: 062
  4. EVRA [Suspect]
     Indication: CONTRACEPTION
     Route: 062

REACTIONS (5)
  - Hepatitis [Recovered/Resolved]
  - Chest pain [Not Recovered/Not Resolved]
  - Nausea [Not Recovered/Not Resolved]
  - Fatigue [Not Recovered/Not Resolved]
  - Metrorrhagia [Not Recovered/Not Resolved]
